FAERS Safety Report 12461124 (Version 1)
Quarter: 2016Q2

REPORT INFORMATION
  Report Type: Spontaneous
  Country: US (occurrence: US)
  Receive Date: 20160613
  Receipt Date: 20160613
  Transmission Date: 20160815
  Serious: No
  Sender: FDA-Public Use
  Company Number: US-US WORLDMEDS, LLC-USW201511-000331

PATIENT
  Age: 71 Year
  Sex: Male

DRUGS (6)
  1. SINEMET [Concomitant]
     Active Substance: CARBIDOPA\LEVODOPA
  2. APOKYN [Suspect]
     Active Substance: APOMORPHINE HYDROCHLORIDE
     Indication: PARKINSON^S DISEASE
     Route: 058
     Dates: start: 20151112, end: 20151112
  3. DOMPERIDONE [Concomitant]
     Active Substance: DOMPERIDONE
  4. AZILECT [Concomitant]
     Active Substance: RASAGILINE MESYLATE
  5. ASA [Concomitant]
     Active Substance: ASPIRIN
  6. JANTOVEN [Concomitant]
     Active Substance: WARFARIN SODIUM

REACTIONS (3)
  - Tremor [Recovered/Resolved]
  - Orthostatic hypotension [Recovered/Resolved]
  - Asthenia [Recovered/Resolved]

NARRATIVE: CASE EVENT DATE: 20151112
